FAERS Safety Report 7277664-0 (Version None)
Quarter: 2011Q1

REPORT INFORMATION
  Report Type: 
  Country: None (occurrence: None)
  Receive Date: 20110207
  Receipt Date: 20110201
  Transmission Date: 20110831
  Serious: Yes (Other)
  Sender: FDA-Public Use
  Company Number: US-B.I. PHARMACEUTICALS,INC./RIDGEFIELD-2011-BP-01930BP

PATIENT
  Age: 57 Year
  Sex: Female

DRUGS (1)
  1. DULCOLAX [Suspect]
     Indication: CONSTIPATION
     Dosage: 10 MG
     Route: 048
     Dates: start: 20110131, end: 20110131

REACTIONS (5)
  - NAUSEA [None]
  - LOSS OF CONSCIOUSNESS [None]
  - ASTHENIA [None]
  - VISION BLURRED [None]
  - ABDOMINAL PAIN [None]
